FAERS Safety Report 8502332-4 (Version None)
Quarter: 2012Q3

REPORT INFORMATION
  Report Type: 
  Country: None (occurrence: None)
  Receive Date: 20120711
  Receipt Date: 20120629
  Transmission Date: 20120928
  Serious: Yes (Hospitalization)
  Sender: FDA-Public Use
  Company Number: JP-JNJFOC-20110809381

PATIENT
  Sex: Male
  Weight: 78 kg

DRUGS (28)
  1. TANATRIL [Concomitant]
     Route: 048
     Dates: start: 19980322
  2. CONIEL [Concomitant]
     Route: 048
     Dates: start: 19961106, end: 19990207
  3. TOLBUTAMIDE [Concomitant]
     Route: 048
     Dates: start: 20000605, end: 20000710
  4. TOLBUTAMIDE [Concomitant]
     Route: 048
     Dates: start: 20000228, end: 20000409
  5. PAMILCON [Concomitant]
     Route: 048
     Dates: start: 20000717, end: 20000730
  6. PRAVASTATIN [Concomitant]
     Route: 048
     Dates: start: 19970809, end: 20010826
  7. TOLBUTAMIDE [Concomitant]
     Route: 048
     Dates: start: 20000228, end: 20000409
  8. INDERAL [Concomitant]
     Route: 048
     Dates: start: 19990906
  9. METFORMIN HYDROCHLORIDE [Concomitant]
     Route: 048
  10. CONIEL [Concomitant]
     Route: 048
     Dates: start: 19961007, end: 19961105
  11. PRAVASTATIN [Concomitant]
     Route: 048
     Dates: start: 19961211, end: 19970807
  12. DAISAIKOTO [Concomitant]
     Route: 048
     Dates: start: 19980130, end: 20030622
  13. AMLODIPINE [Concomitant]
     Route: 048
     Dates: start: 19990208
  14. TOLBUTAMIDE [Concomitant]
     Route: 048
     Dates: start: 19991220, end: 20000227
  15. TOLBUTAMIDE [Concomitant]
     Route: 048
     Dates: start: 19990308, end: 19991219
  16. RISPERDAL CONSTA [Suspect]
     Route: 030
     Dates: start: 20110411, end: 20110801
  17. PAMILCON [Concomitant]
     Route: 048
     Dates: start: 20030623, end: 20031214
  18. TANATRIL [Concomitant]
     Route: 048
     Dates: start: 19970714, end: 19980322
  19. RISPERDAL CONSTA [Suspect]
     Indication: SCHIZOPHRENIA
     Route: 030
     Dates: start: 20110314, end: 20110410
  20. PAMILCON [Concomitant]
     Route: 048
     Dates: start: 20000731, end: 20000813
  21. PAMILCON [Concomitant]
     Route: 048
     Dates: start: 20031215
  22. BEZATOL SR [Concomitant]
     Route: 065
     Dates: start: 20010827, end: 20030622
  23. BASEN [Concomitant]
     Route: 048
     Dates: start: 19980615
  24. PAMILCON [Concomitant]
     Route: 048
     Dates: start: 20000814, end: 20000827
  25. PAMILCON [Concomitant]
     Route: 048
     Dates: start: 20000828, end: 20001105
  26. PAMILCON [Concomitant]
     Route: 048
     Dates: start: 20001106, end: 20030622
  27. NORVASC [Concomitant]
     Route: 048
  28. TOLBUTAMIDE [Concomitant]
     Route: 048
     Dates: start: 20000410, end: 20000604

REACTIONS (2)
  - NEUROLEPTIC MALIGNANT SYNDROME [None]
  - DRUG DOSE OMISSION [None]
